FAERS Safety Report 19048177 (Version 1)
Quarter: 2021Q1

REPORT INFORMATION
  Report Type: Other
  Country: PT (occurrence: PT)
  Receive Date: 20210324
  Receipt Date: 20210324
  Transmission Date: 20210420
  Serious: Yes (Other)
  Sender: FDA-Public Use
  Company Number: PT-BIOLOGICAL E. LTD-2108370

PATIENT

DRUGS (1)
  1. HEPARIN SODIUM INJECTION USP, 5,000 UNITS PER 0.5 ML (10,000 UNITS PER [Suspect]
     Active Substance: HEPARIN SODIUM
     Indication: PRODUCT USED FOR UNKNOWN INDICATION
     Route: 065

REACTIONS (1)
  - Shock haemorrhagic [Recovered/Resolved]
